FAERS Safety Report 9888344 (Version 1)
Quarter: 2014Q1

REPORT INFORMATION
  Report Type: Spontaneous
  Country: DE (occurrence: DE)
  Receive Date: 20140211
  Receipt Date: 20140211
  Transmission Date: 20141002
  Serious: Yes (Other)
  Sender: FDA-Public Use
  Company Number: DE-B.I. PHARMACEUTICALS,INC./RIDGEFIELD-2014-BI-05519DE

PATIENT
  Age: 88 Year
  Sex: Male

DRUGS (2)
  1. PRADAXA [Suspect]
     Indication: ATRIAL FIBRILLATION
     Dosage: 220 MG
  2. PRADAXA [Suspect]
     Indication: ATRIAL THROMBOSIS

REACTIONS (4)
  - Blindness [Unknown]
  - Eye haemorrhage [Unknown]
  - Soft tissue haemorrhage [Unknown]
  - Mass [Unknown]
